FAERS Safety Report 5955988-4 (Version None)
Quarter: 2008Q4

REPORT INFORMATION
  Report Type: 
  Country: None (occurrence: None)
  Receive Date: 20081117
  Receipt Date: 20081111
  Transmission Date: 20090506
  Serious: Yes (Other)
  Sender: FDA-Public Use
  Company Number: CA-ALLERGAN-0802013US

PATIENT
  Sex: Female

DRUGS (2)
  1. BOTOX [Suspect]
     Indication: DROOLING
     Dosage: 150 UNITS, SINGLE
     Dates: start: 20070924, end: 20070924
  2. BOTOX [Suspect]
     Indication: MUSCLE SPASTICITY
     Dosage: 350 UNITS, SINGLE
     Route: 030
     Dates: start: 20070921, end: 20070921

REACTIONS (2)
  - PNEUMONIA [None]
  - SPUTUM RETENTION [None]
